FAERS Safety Report 17262378 (Version 1)
Quarter: 2020Q1

REPORT INFORMATION
  Report Type: Spontaneous
  Country: US (occurrence: US)
  Receive Date: 20200110
  Receipt Date: 20200110
  Transmission Date: 20200409
  Serious: No
  Sender: FDA-Public Use
  Company Number: None

PATIENT

DRUGS (1)
  1. GLYBURIDE 1.25 MG [Suspect]
     Active Substance: GLYBURIDE
     Indication: GESTATIONAL DIABETES

REACTIONS (1)
  - Exposure during pregnancy [None]
